FAERS Safety Report 8149938-2 (Version None)
Quarter: 2012Q1

REPORT INFORMATION
  Report Type: 
  Country: None (occurrence: None)
  Receive Date: 20120218
  Receipt Date: 20111130
  Transmission Date: 20120608
  Serious: No
  Sender: FDA-Public Use
  Company Number: US-ALLERGAN-1116558US

PATIENT
  Age: 63 Year
  Sex: Male

DRUGS (1)
  1. BOTULINUM TOXIN TYPE A [Suspect]
     Indication: SPASMODIC DYSPHONIA
     Dosage: 1.5 UNITS, SINGLE
     Route: 030
     Dates: start: 20110817, end: 20110817

REACTIONS (1)
  - APHONIA [None]
